FAERS Safety Report 11017120 (Version 2)
Quarter: 2015Q2

REPORT INFORMATION
  Report Type: Spontaneous
  Country: US (occurrence: US)
  Receive Date: 20150412
  Receipt Date: 20150525
  Transmission Date: 20150821
  Serious: No
  Sender: FDA-Public Use
  Company Number: US-JNJFOC-20131203896

PATIENT
  Age: 12 Year
  Sex: Female
  Weight: 52.16 kg

DRUGS (1)
  1. ORTHO EVRA [Suspect]
     Active Substance: ETHINYL ESTRADIOL\NORELGESTROMIN
     Indication: HORMONE THERAPY
     Route: 062
     Dates: start: 20131202, end: 20131205

REACTIONS (13)
  - Abdominal pain upper [Recovered/Resolved]
  - Hypersomnia [Recovered/Resolved]
  - Lethargy [Recovered/Resolved]
  - Mobility decreased [Recovered/Resolved]
  - Dizziness [Recovered/Resolved]
  - Diarrhoea [Recovered/Resolved]
  - Gait disturbance [Recovered/Resolved]
  - Product use issue [Recovered/Resolved]
  - Influenza like illness [Recovered/Resolved]
  - Pain [Recovered/Resolved]
  - Abdominal pain lower [Recovered/Resolved]
  - Headache [Recovered/Resolved]
  - Nausea [Recovered/Resolved]

NARRATIVE: CASE EVENT DATE: 20131202
